FAERS Safety Report 7807901-2 (Version None)
Quarter: 2011Q4

REPORT INFORMATION
  Report Type: 
  Country: None (occurrence: None)
  Receive Date: 20111011
  Receipt Date: 20101112
  Transmission Date: 20120403
  Serious: No
  Sender: FDA-Public Use
  Company Number: US-BAYER-201041479NA

PATIENT
  Sex: Female

DRUGS (1)
  1. ULTRAVIST (PHARMACY BULK) [Suspect]
     Indication: COMPUTERISED TOMOGRAM THORAX
     Dosage: AT AC,100M/S AT 37.5DEGREE CELCIUS;POWER INJECTOR @ 4CC/SEC
     Route: 042
     Dates: start: 20101112

REACTIONS (1)
  - URTICARIA [None]
